FAERS Safety Report 4630733-3 (Version None)
Quarter: 2005Q2

REPORT INFORMATION
  Report Type: 
  Country: None (occurrence: None)
  Receive Date: 20050408
  Receipt Date: 20050316
  Transmission Date: 20051028
  Serious: Yes (Hospitalization, Other)
  Sender: FDA-Public Use
  Company Number: PHBS2005JP03819

PATIENT
  Age: 9 Year
  Sex: Male
  Weight: 16 kg

DRUGS (3)
  1. SELENICA-R [Suspect]
     Indication: EPILEPSY
     Dosage: 400 MG/DAY
     Route: 048
     Dates: start: 20040213, end: 20040927
  2. TEGRETOL [Suspect]
     Indication: EPILEPSY
     Dosage: 150 MG/DAY
     Route: 048
     Dates: start: 20041018
  3. TEGRETOL [Suspect]
     Dosage: 150 MG/DAY
     Route: 048
     Dates: start: 20040213, end: 20040927

REACTIONS (18)
  - BLOOD CREATINE PHOSPHOKINASE INCREASED [None]
  - BLOOD PRESSURE DECREASED [None]
  - C-REACTIVE PROTEIN INCREASED [None]
  - CHROMATURIA [None]
  - EJECTION FRACTION DECREASED [None]
  - HAEMATURIA [None]
  - INTUBATION [None]
  - MYOGLOBINURIA [None]
  - OLIGURIA [None]
  - PERIPHERAL COLDNESS [None]
  - PNEUMONIA [None]
  - PYREXIA [None]
  - RESPIRATORY DISTRESS [None]
  - RHABDOMYOLYSIS [None]
  - SYSTEMIC INFLAMMATORY RESPONSE SYNDROME [None]
  - TACHYCARDIA [None]
  - TACHYPNOEA [None]
  - WHITE BLOOD CELL COUNT DECREASED [None]
